FAERS Safety Report 15921628 (Version 1)
Quarter: 2019Q1

REPORT INFORMATION
  Report Type: Spontaneous
  Country: JP (occurrence: JP)
  Receive Date: 20190205
  Receipt Date: 20190205
  Transmission Date: 20190417
  Serious: Yes (Other)
  Sender: FDA-Public Use
  Company Number: PHJP2019JP001335

PATIENT
  Age: 71 Year
  Sex: Male

DRUGS (1)
  1. ZOLEDRONATE [Suspect]
     Active Substance: ZOLEDRONIC ACID
     Indication: METASTASES TO BONE
     Dosage: UNK
     Route: 041

REACTIONS (5)
  - Osteomyelitis [Unknown]
  - Gingival abscess [Unknown]
  - Fistula [Recovering/Resolving]
  - Pain [Unknown]
  - Gingival swelling [Recovering/Resolving]
